FAERS Safety Report 4548271-5 (Version None)
Quarter: 2004Q4

REPORT INFORMATION
  Report Type: 
  Country: None (occurrence: None)
  Receive Date: 20041227
  Receipt Date: 20041008
  Transmission Date: 20050328
  Serious: No
  Sender: FDA-Public Use
  Company Number: 04P-163-0276814-00

PATIENT
  Age: 64 Year
  Sex: Female
  Weight: 63.5036 kg

DRUGS (8)
  1. HUMIRA [Suspect]
     Indication: RHEUMATOID ARTHRITIS
     Dosage: 40 MG, 1 IN 2  WK, SUBCUTANEOUS
     Route: 058
     Dates: start: 20040501
  2. LEFLUNOMIDE [Concomitant]
  3. BUCINDOLOL HYDROCHLORIDE [Concomitant]
  4. PREDNISONE [Concomitant]
  5. VERAPAMIL [Concomitant]
  6. FOLIC ACID [Concomitant]
  7. IRON [Concomitant]
  8. CALCIUM GLUCONATE [Concomitant]

REACTIONS (3)
  - INJECTION SITE ERYTHEMA [None]
  - INJECTION SITE PRURITUS [None]
  - INJECTION SITE SWELLING [None]
